FAERS Safety Report 8588000-1 (Version None)
Quarter: 2012Q3

REPORT INFORMATION
  Report Type: 
  Country: None (occurrence: None)
  Receive Date: 20120813
  Receipt Date: 20120731
  Transmission Date: 20120928
  Serious: No
  Sender: FDA-Public Use
  Company Number: US-009507513-1208USA000461

PATIENT

DRUGS (10)
  1. GABAPENTIN [Concomitant]
  2. CHOLECALCIFEROL [Concomitant]
  3. PEGASYS [Suspect]
  4. RIBASPHERE [Suspect]
  5. TYLENOL [Concomitant]
     Dosage: UNK, PRN
  6. ZOMIG [Concomitant]
  7. VICTRELIS [Suspect]
     Indication: HEPATITIS C
     Dosage: 800 MG, TID
     Dates: start: 20120301
  8. CYMBALTA [Concomitant]
  9. PREMARIN [Concomitant]
  10. ALPRAZOLAM [Concomitant]

REACTIONS (1)
  - DEPRESSIVE SYMPTOM [None]
